FAERS Safety Report 13978179 (Version 2)
Quarter: 2017Q3

REPORT INFORMATION
  Report Type: Report from Study
  Country: US (occurrence: US)
  Receive Date: 20170915
  Receipt Date: 20170926
  Transmission Date: 20171128
  Serious: Yes (Hospitalization)
  Sender: FDA-Public Use
  Company Number: US-ACTELION-A-NJ2017-154619

PATIENT
  Age: 85 Year
  Sex: Female
  Weight: 48.53 kg

DRUGS (6)
  1. UPTRAVI [Suspect]
     Active Substance: SELEXIPAG
     Dosage: 800 MCG, AT NOON ONLY
     Route: 048
  2. SILDENAFIL CITRATE. [Concomitant]
     Active Substance: SILDENAFIL CITRATE
  3. ELIQUIS [Concomitant]
     Active Substance: APIXABAN
  4. UPTRAVI [Suspect]
     Active Substance: SELEXIPAG
     Indication: PULMONARY HYPERTENSION
     Dosage: 200 MCG, BID
     Route: 048
  5. UPTRAVI [Suspect]
     Active Substance: SELEXIPAG
     Dosage: 400 MCG, QD AT NOON
     Route: 048
  6. UPTRAVI [Suspect]
     Active Substance: SELEXIPAG
     Dosage: 1200 MCG, BID
     Route: 048

REACTIONS (9)
  - Pyrexia [Unknown]
  - Insomnia [Unknown]
  - Pneumonia [Recovered/Resolved]
  - Hypotension [Unknown]
  - Productive cough [Unknown]
  - Faeces soft [Unknown]
  - Intestinal obstruction [Unknown]
  - Clostridium difficile infection [Unknown]
  - Headache [Unknown]

NARRATIVE: CASE EVENT DATE: 20170525
